FAERS Safety Report 25364745 (Version 2)
Quarter: 2025Q2

REPORT INFORMATION
  Report Type: Spontaneous
  Country: CN (occurrence: CN)
  Receive Date: 20250527
  Receipt Date: 20250604
  Transmission Date: 20250716
  Serious: Yes (Hospitalization, Disabling)
  Sender: ASTELLAS
  Company Number: CN-ASTELLAS-2025-AER-027938

PATIENT
  Age: 43 Year
  Sex: Male
  Weight: 60 kg

DRUGS (3)
  1. PROGRAF [Suspect]
     Active Substance: TACROLIMUS
     Indication: Prophylaxis against transplant rejection
     Route: 048
     Dates: start: 20240928, end: 20250521
  2. MYCOPHENOLATE MOFETIL [Concomitant]
     Active Substance: MYCOPHENOLATE MOFETIL
     Indication: Product used for unknown indication
     Dosage: ONGOING?CYCOPIN
     Route: 048
     Dates: start: 20240928
  3. URSODIOL [Concomitant]
     Active Substance: URSODIOL
     Indication: Product used for unknown indication
     Dosage: ONGOING
     Route: 048
     Dates: start: 20240928

REACTIONS (4)
  - Hepatic function abnormal [Recovering/Resolving]
  - Immunosuppressant drug level increased [Recovering/Resolving]
  - Toxicity to various agents [Unknown]
  - Off label use [Unknown]

NARRATIVE: CASE EVENT DATE: 20240928
